FAERS Safety Report 12440308 (Version 1)
Quarter: 2016Q2

REPORT INFORMATION
  Report Type: Spontaneous
  Country: US (occurrence: US)
  Receive Date: 20160606
  Receipt Date: 20160606
  Transmission Date: 20160815
  Serious: No
  Sender: FDA-Public Use
  Company Number: US-AMGEN-USASP2016031934

PATIENT
  Age: 46 Year
  Sex: Female
  Weight: 111.57 kg

DRUGS (8)
  1. FENTANYL. [Concomitant]
     Active Substance: FENTANYL
     Indication: ABDOMINAL PAIN
     Dosage: 2500 MCG/ 250 MG, UNK
     Route: 041
     Dates: start: 20160307
  2. PROCRIT [Suspect]
     Active Substance: ERYTHROPOIETIN
     Indication: SURGERY
     Dosage: 10000 UNITS, UNK
     Route: 042
     Dates: start: 20160301, end: 20160303
  3. PROCRIT [Suspect]
     Active Substance: ERYTHROPOIETIN
     Dosage: 40000 UNITS, UNK
     Route: 042
     Dates: start: 20160303
  4. VENOFER [Concomitant]
     Active Substance: IRON SUCROSE
     Indication: HAEMOGLOBIN DECREASED
     Dosage: 200 MG, 3 ON TIME DOSES
     Route: 042
     Dates: start: 20160301
  5. FENTANYL. [Concomitant]
     Active Substance: FENTANYL
     Indication: SEDATION
  6. TYLENOL [Concomitant]
     Active Substance: ACETAMINOPHEN
     Indication: ABDOMINAL PAIN
     Dosage: 650 MG, EVERY 6 HOURS AS NEED
     Dates: start: 20160307
  7. UNASYN [Concomitant]
     Active Substance: AMPICILLIN SODIUM\SULBACTAM SODIUM
     Indication: ABDOMINAL INFECTION
     Dosage: 3 G, Q6H
     Route: 042
     Dates: start: 20160307
  8. CEFTRIAXONE. [Concomitant]
     Active Substance: CEFTRIAXONE
     Indication: ABDOMINAL INFECTION
     Dosage: 2 G, DAILY
     Route: 042
     Dates: start: 20160307

REACTIONS (2)
  - Haemoglobin decreased [Not Recovered/Not Resolved]
  - Off label use [Unknown]

NARRATIVE: CASE EVENT DATE: 20160301
